FAERS Safety Report 9049634 (Version 2)
Quarter: 2013Q1

REPORT INFORMATION
  Report Type: Spontaneous
  Country: IT (occurrence: IT)
  Receive Date: 20130205
  Receipt Date: 20130318
  Transmission Date: 20140127
  Serious: Yes (Hospitalization, Other)
  Sender: FDA-Public Use
  Company Number: IT-PFIZER INC-2013041605

PATIENT
  Age: 24 Year
  Sex: Female

DRUGS (1)
  1. ARACYTIN [Suspect]
     Indication: ACUTE MYELOMONOCYTIC LEUKAEMIA
     Dosage: 200 MG/M2, 1X/DAY
     Route: 042
     Dates: start: 20110916, end: 20110922

REACTIONS (3)
  - Sepsis [Recovered/Resolved]
  - Ecthyma [Recovered/Resolved]
  - Pseudomonas infection [Recovered/Resolved]
